FAERS Safety Report 9364528 (Version 1)
Quarter: 2013Q2

REPORT INFORMATION
  Report Type: Spontaneous
  Country: VE (occurrence: VE)
  Receive Date: 20130624
  Receipt Date: 20130624
  Transmission Date: 20140414
  Serious: Yes (Hospitalization, Other)
  Sender: FDA-Public Use
  Company Number: VE-PFIZER INC-2013184547

PATIENT
  Age: 73 Year
  Sex: Male

DRUGS (1)
  1. CADUET [Suspect]
     Dosage: [AMLODIPINE BESILATE 5 MG]/ [ATORVASTATIN CALCIUM 20 MG], UNK

REACTIONS (7)
  - Limb discomfort [Unknown]
  - Myocardial infarction [Unknown]
  - Femoral artery occlusion [Unknown]
  - Angiopathy [Unknown]
  - Post procedural complication [Unknown]
  - Diabetes mellitus [Unknown]
  - Drug ineffective [Unknown]
